FAERS Safety Report 8189178-4 (Version None)
Quarter: 2012Q1

REPORT INFORMATION
  Report Type: 
  Country: None (occurrence: None)
  Receive Date: 20120307
  Receipt Date: 20120224
  Transmission Date: 20120608
  Serious: Yes (Hospitalization)
  Sender: FDA-Public Use
  Company Number: GB-PAR PHARMACEUTICAL, INC-2012SCPR004242

PATIENT

DRUGS (9)
  1. SPIRONOLACTONE [Concomitant]
     Dosage: 100 MG ONCE A DAY
     Route: 065
  2. AMILORIDE HYDROCHLORIDE [Concomitant]
     Indication: ASCITES
     Dosage: UNK, UNKNOWN
     Route: 065
     Dates: start: 20090101, end: 20090101
  3. ATENOLOL [Suspect]
     Indication: MYOCARDIAL ISCHAEMIA
     Dosage: UNK, UNKNOWN
     Route: 065
     Dates: start: 20050101, end: 20070101
  4. SPIRONOLACTONE [Concomitant]
     Indication: ASCITES
     Dosage: UNK, UNKNOWN
     Route: 065
  5. PROPRANOLOL HYDROCHLORIDE [Suspect]
     Indication: MYOCARDIAL ISCHAEMIA
     Dosage: 40 MG, BID
     Route: 065
     Dates: end: 20090101
  6. ASPIRIN [Concomitant]
     Indication: PRODUCT USED FOR UNKNOWN INDICATION
     Dosage: UNK, UNKNOWN
     Route: 065
  7. PRAVASTATIN [Concomitant]
     Indication: PRODUCT USED FOR UNKNOWN INDICATION
     Dosage: UNK, UNKNOWN
     Route: 065
  8. RANITIDINE [Concomitant]
     Indication: PRODUCT USED FOR UNKNOWN INDICATION
     Dosage: UNK, UNKNOWN
     Route: 065
  9. ATENOLOL [Suspect]
     Dosage: UNK UNK, UNKNOWN
     Route: 065
     Dates: start: 20090101, end: 20091101

REACTIONS (1)
  - SCLEROSING ENCAPSULATING PERITONITIS [None]
